FAERS Safety Report 5149875-1 (Version None)
Quarter: 2006Q4

REPORT INFORMATION
  Report Type: 
  Country: None (occurrence: None)
  Receive Date: 20061113
  Receipt Date: 20061108
  Transmission Date: 20070319
  Serious: Yes (Other)
  Sender: FDA-Public Use
  Company Number: AU-BRISTOL-MYERS SQUIBB COMPANY-13570247

PATIENT
  Age: 61 Year
  Sex: Male

DRUGS (5)
  1. ATAZANAVIR [Suspect]
     Indication: HIV INFECTION
     Dosage: WITHDRAWN 12-JAN-2004 RESTARTED ON AN UNSPECIFIED DATE THEN DISCONTINUED IN JUN-2005
     Route: 048
     Dates: start: 20030814, end: 20050601
  2. DIDANOSINE [Suspect]
     Indication: HIV INFECTION
     Route: 048
  3. RITONAVIR [Suspect]
     Indication: HIV INFECTION
     Dosage: WITHDRAWN 12-JAN-2004 RESTARTED ON AN UNSPECIFIED DATE THEN DISCONTINUED IN JUN-2005
     Route: 048
     Dates: start: 20030814, end: 20050601
  4. VIREAD [Suspect]
     Indication: HIV INFECTION
     Dosage: WITHDRAWN 12-JAN-2004 RESTARTED ON AN UNSPECIFIED DATE THEN DISCONTINUED IN JUN-2005
     Route: 048
     Dates: start: 20030214, end: 20050606
  5. KALETRA [Concomitant]
     Dates: end: 20050601

REACTIONS (4)
  - BLOOD BILIRUBIN INCREASED [None]
  - BLOOD CREATININE INCREASED [None]
  - BLOOD LACTIC ACID INCREASED [None]
  - PROTEINURIA [None]
